FAERS Safety Report 4722036-3 (Version None)
Quarter: 2005Q3

REPORT INFORMATION
  Report Type: 
  Country: None (occurrence: None)
  Receive Date: 20050722
  Receipt Date: 20050705
  Transmission Date: 20060218
  Serious: Yes (Other)
  Sender: FDA-Public Use
  Company Number: JP-ROCHE-409910

PATIENT
  Age: 41 Year
  Sex: Male

DRUGS (1)
  1. ROCEPHIN [Suspect]
     Indication: ACUTE TONSILLITIS
     Dosage: ROCEPHIN 1 GRAM BAG.
     Route: 041
     Dates: start: 20050630, end: 20050630

REACTIONS (1)
  - SHOCK [None]
